FAERS Safety Report 20652624 (Version 2)
Quarter: 2022Q2

REPORT INFORMATION
  Report Type: Spontaneous
  Country: JP (occurrence: JP)
  Receive Date: 20220330
  Receipt Date: 20220502
  Transmission Date: 20220721
  Serious: Yes (Other)
  Sender: FDA-Public Use
  Company Number: JP-ELI_LILLY_AND_COMPANY-JP202203002225

PATIENT
  Age: 60 Year
  Sex: Male
  Weight: 77 kg

DRUGS (3)
  1. NECITUMUMAB [Suspect]
     Active Substance: NECITUMUMAB
     Indication: Squamous cell carcinoma
     Dosage: 800 MG, UNKNOWN
     Route: 041
     Dates: start: 20220127
  2. CISPLATIN [Concomitant]
     Active Substance: CISPLATIN
     Indication: Squamous cell carcinoma
     Dosage: UNK
     Route: 042
     Dates: start: 20220127
  3. GEMCITABINE HYDROCHLORIDE [Concomitant]
     Active Substance: GEMCITABINE HYDROCHLORIDE
     Indication: Squamous cell carcinoma
     Dosage: UNK
     Route: 042
     Dates: start: 20220127

REACTIONS (2)
  - Skin disorder [Recovering/Resolving]
  - Skin disorder [Recovering/Resolving]

NARRATIVE: CASE EVENT DATE: 20220127
